FAERS Safety Report 6348303-8 (Version None)
Quarter: 2009Q3

REPORT INFORMATION
  Report Type: 
  Country: None (occurrence: None)
  Receive Date: 20090908
  Receipt Date: 20090821
  Transmission Date: 20100115
  Serious: Yes (Hospitalization)
  Sender: FDA-Public Use
  Company Number: APP200900542

PATIENT
  Age: 61 Year
  Sex: Male
  Weight: 87.0906 kg

DRUGS (2)
  1. NAROPIN [Suspect]
     Indication: MENISCUS LESION
     Dosage: 9 ML, KNEE INJECTION
     Dates: start: 20090813, end: 20090813
  2. NAROPIN [Suspect]
     Indication: PATELLOFEMORAL PAIN SYNDROME
     Dosage: 9 ML, KNEE INJECTION
     Dates: start: 20090813, end: 20090813

REACTIONS (3)
  - INFECTION [None]
  - PAIN [None]
  - SWELLING [None]
